FAERS Safety Report 14584003 (Version 1)
Quarter: 2018Q1

REPORT INFORMATION
  Report Type: Spontaneous
  Country: DE (occurrence: DE)
  Receive Date: 20180228
  Receipt Date: 20180228
  Transmission Date: 20180509
  Serious: Yes (Hospitalization)
  Sender: FDA-Public Use
  Company Number: DE-TEVA-2018-DE-861201

PATIENT
  Age: 16 Year
  Sex: Male
  Weight: 75 kg

DRUGS (3)
  1. LACOSAMID [Concomitant]
     Active Substance: LACOSAMIDE
     Indication: EPILEPSY
     Dosage: 160 MILLIGRAM DAILY; DAILY DOSE: 160 MG MILLGRAM(S) EVERY DAYS
     Route: 048
     Dates: start: 2014
  2. COLECALCIFEROL [Concomitant]
     Active Substance: CHOLECALCIFEROL
  3. ZONISAMID [Suspect]
     Active Substance: ZONISAMIDE
     Indication: EPILEPSY
     Dosage: 175-0-200
     Route: 048
     Dates: start: 2015

REACTIONS (2)
  - Haematuria [Recovering/Resolving]
  - Calculus urinary [Recovering/Resolving]

NARRATIVE: CASE EVENT DATE: 2017
